FAERS Safety Report 9598489 (Version 2)
Quarter: 2014Q1

REPORT INFORMATION
  Report Type: Spontaneous
  Country: US (occurrence: US)
  Receive Date: 20131004
  Receipt Date: 20140225
  Transmission Date: 20141002
  Serious: No
  Sender: FDA-Public Use
  Company Number: US-AMGEN-USASP2013024112

PATIENT
  Age: 63 Year
  Sex: Male
  Weight: 106.1 kg

DRUGS (6)
  1. ENBREL [Suspect]
     Indication: PSORIATIC ARTHROPATHY
     Dosage: 50 MG, QWK
     Route: 058
     Dates: start: 20070430, end: 2013
  2. ENBREL [Suspect]
     Indication: PSORIASIS
  3. LISINOPRIL [Concomitant]
     Dosage: 40 MG, UNK
  4. HYDROCHLOROTH [Concomitant]
     Dosage: 25 MG, UNK
  5. KETOPROFEN [Concomitant]
     Dosage: 200 MG,( ER ) UNK
  6. CLONIDINE [Concomitant]
     Dosage: DIS 0.1/ 24 HR

REACTIONS (3)
  - Psoriasis [Recovered/Resolved]
  - Drug effect decreased [Recovered/Resolved]
  - Psoriatic arthropathy [Recovered/Resolved]
